FAERS Safety Report 9322607 (Version 1)
Quarter: 2013Q2

REPORT INFORMATION
  Report Type: Spontaneous
  Country: US (occurrence: US)
  Receive Date: 20130531
  Receipt Date: 20130531
  Transmission Date: 20140414
  Serious: No
  Sender: FDA-Public Use
  Company Number: US-ASTRAZENECA-2013SE33874

PATIENT
  Sex: Male
  Weight: 97.5 kg

DRUGS (6)
  1. PULMICORT FLEXHALER [Suspect]
     Indication: PULMONARY FIBROSIS
     Route: 055
     Dates: start: 201305
  2. OMEPRAZOLE [Suspect]
     Indication: GASTROOESOPHAGEAL REFLUX DISEASE
     Route: 048
  3. CRESTOR [Suspect]
     Route: 048
  4. LEVOXYL [Concomitant]
  5. COUGH SUPPRESSANTS [Concomitant]
  6. PREDNISONE [Concomitant]

REACTIONS (8)
  - Retching [Recovering/Resolving]
  - Sinusitis [Unknown]
  - Upper-airway cough syndrome [Unknown]
  - Increased upper airway secretion [Unknown]
  - Nasal congestion [Unknown]
  - Cough [Unknown]
  - Off label use [Unknown]
  - Incorrect storage of drug [Unknown]
